FAERS Safety Report 23601987 (Version 1)
Quarter: 2024Q1

REPORT INFORMATION
  Report Type: Spontaneous
  Country: US (occurrence: US)
  Receive Date: 20240306
  Receipt Date: 20240306
  Transmission Date: 20240410
  Serious: No
  Sender: FDA-Public Use
  Company Number: US-SA-SAC20240301000617

PATIENT
  Sex: Male

DRUGS (12)
  1. DUPIXENT [Suspect]
     Active Substance: DUPILUMAB
     Indication: Dermatitis atopic
     Dosage: 300 MG, QOW
     Route: 058
  2. FLUOROMETHOLONE [Concomitant]
     Active Substance: FLUOROMETHOLONE
  3. BISOPROLOL FUMARATE [Concomitant]
     Active Substance: BISOPROLOL FUMARATE
  4. BUPROPION HYDROCHLORIDE [Concomitant]
     Active Substance: BUPROPION HYDROCHLORIDE
  5. DOXYCYCLINE [Concomitant]
     Active Substance: DOXYCYCLINE
  6. ENTRESTO [Concomitant]
     Active Substance: SACUBITRIL\VALSARTAN
  7. FUROSEMIDE [Concomitant]
     Active Substance: FUROSEMIDE
  8. SERTRALINE HYDROCHLORIDE [Concomitant]
     Active Substance: SERTRALINE HYDROCHLORIDE
  9. SIMVASTATIN [Concomitant]
     Active Substance: SIMVASTATIN
  10. XARELTO [Concomitant]
     Active Substance: RIVAROXABAN
  11. SPIRONOLACTONE [Concomitant]
     Active Substance: SPIRONOLACTONE
  12. ASPIRIN [Concomitant]
     Active Substance: ASPIRIN

REACTIONS (9)
  - Blister [Unknown]
  - Skin fissures [Recovering/Resolving]
  - Asthenia [Unknown]
  - Depressed mood [Unknown]
  - Sleep disorder due to a general medical condition [Recovered/Resolved]
  - Skin haemorrhage [Recovered/Resolved]
  - Skin exfoliation [Recovering/Resolving]
  - Erythema [Unknown]
  - Pruritus [Unknown]
